FAERS Safety Report 14636359 (Version 1)
Quarter: 2018Q1

REPORT INFORMATION
  Report Type: Report from Study
  Country: AR (occurrence: AR)
  Receive Date: 20180314
  Receipt Date: 20180314
  Transmission Date: 20180509
  Serious: Yes (Hospitalization)
  Sender: FDA-Public Use
  Company Number: PHHY2018AR037024

PATIENT
  Sex: Female

DRUGS (1)
  1. DIOVAN [Suspect]
     Active Substance: VALSARTAN
     Indication: HYPERTENSION
     Dosage: 1.5 DF, QD
     Route: 065

REACTIONS (3)
  - Drug prescribing error [Not Recovered/Not Resolved]
  - Intracranial aneurysm [Recovering/Resolving]
  - Wrong technique in product usage process [Not Recovered/Not Resolved]
